FAERS Safety Report 5788776-2 (Version None)
Quarter: 2008Q2

REPORT INFORMATION
  Report Type: 
  Country: None (occurrence: None)
  Receive Date: 20080626
  Receipt Date: 20080616
  Transmission Date: 20081010
  Serious: Yes (Death, Hospitalization)
  Sender: FDA-Public Use
  Company Number: US-AMGEN-US085201

PATIENT
  Sex: Female

DRUGS (3)
  1. NEULASTA [Suspect]
     Indication: CHEMOTHERAPY
     Dates: start: 20040326
  2. THALIDOMIDE [Concomitant]
     Dates: start: 20040301
  3. UNSPECIFIED ANTINEOPLASTIC AGENT [Concomitant]

REACTIONS (5)
  - COMA [None]
  - DEATH [None]
  - GRAND MAL CONVULSION [None]
  - HOT FLUSH [None]
  - VOMITING [None]
